FAERS Safety Report 23768456 (Version 1)
Quarter: 2024Q2

REPORT INFORMATION
  Report Type: Spontaneous
  Country: GB (occurrence: GB)
  Receive Date: 20240422
  Receipt Date: 20240422
  Transmission Date: 20240716
  Serious: Yes (Disabling, Other)
  Sender: FDA-Public Use
  Company Number: None

PATIENT
  Age: 67 Year
  Sex: Male

DRUGS (3)
  1. CIPROFLOXACIN [Suspect]
     Active Substance: CIPROFLOXACIN
     Indication: Diverticulitis
     Dosage: 500 MILLIGRAM, BID (500 MGS ONE TABLET TWICE A DAY)
     Route: 065
     Dates: start: 20230625, end: 20230627
  2. METRONIDAZOLE [Concomitant]
     Active Substance: METRONIDAZOLE
     Indication: Adverse drug reaction
     Dosage: UNK
     Route: 065
     Dates: start: 20230625, end: 20230702
  3. CEFUROXIME [Concomitant]
     Active Substance: CEFUROXIME
     Indication: Diverticulitis
     Dosage: UNK
     Route: 042

REACTIONS (2)
  - Neuropathy peripheral [Not Recovered/Not Resolved]
  - Medication error [Unknown]

NARRATIVE: CASE EVENT DATE: 20230625
